FAERS Safety Report 9360400 (Version 1)
Quarter: 2013Q2

REPORT INFORMATION
  Report Type: Spontaneous
  Country: FR (occurrence: FR)
  Receive Date: 20130621
  Receipt Date: 20130621
  Transmission Date: 20140414
  Serious: Yes (Hospitalization)
  Sender: FDA-Public Use
  Company Number: FR-ASTRAZENECA-2013SE46711

PATIENT
  Age: 80 Year
  Sex: Female

DRUGS (1)
  1. HYTACAND [Suspect]
     Indication: HYPERTENSION
     Route: 048
     Dates: start: 2005, end: 201104

REACTIONS (4)
  - Laryngeal disorder [Unknown]
  - Dysphonia [Unknown]
  - Respiratory disorder [Unknown]
  - Angioedema [Recovering/Resolving]
